FAERS Safety Report 23945879 (Version 1)
Quarter: 2024Q2

REPORT INFORMATION
  Report Type: Spontaneous
  Country: US (occurrence: US)
  Receive Date: 20240606
  Receipt Date: 20240606
  Transmission Date: 20240716
  Serious: No
  Sender: FDA-Public Use
  Company Number: US-B.Braun Medical Inc.-2157843

PATIENT
  Age: 37 Year
  Sex: Female

DRUGS (1)
  1. BUPIVACAINE HYDROCHLORIDE [Suspect]
     Active Substance: BUPIVACAINE HYDROCHLORIDE\BUPIVACAINE HYDROCHLORIDE ANHYDROUS
     Indication: Caesarean section

REACTIONS (2)
  - Anaesthetic complication [Recovered/Resolved]
  - Maternal exposure during pregnancy [Recovered/Resolved]
